FAERS Safety Report 6280807-9 (Version None)
Quarter: 2009Q3

REPORT INFORMATION
  Report Type: 
  Country: None (occurrence: None)
  Receive Date: 20090724
  Receipt Date: 20090316
  Transmission Date: 20100115
  Serious: No
  Sender: FDA-Public Use
  Company Number: A0768475A

PATIENT
  Age: 74 Year
  Sex: Female

DRUGS (9)
  1. AVANDIA [Suspect]
     Dosage: 8MG PER DAY
     Route: 048
     Dates: start: 20040101, end: 20090226
  2. METFORMIN HCL [Concomitant]
  3. PROZAC [Concomitant]
  4. MECLIZINE [Concomitant]
  5. ENABLEX [Concomitant]
  6. LIPITOR [Concomitant]
  7. AMITRIPTYLINE HCL [Concomitant]
  8. NEURONTIN [Concomitant]
  9. TRAMAZOLINE [Concomitant]

REACTIONS (1)
  - FALL [None]
